FAERS Safety Report 14645551 (Version 5)
Quarter: 2018Q2

REPORT INFORMATION
  Report Type: Report from Study
  Country: None (occurrence: GB)
  Receive Date: 20180316
  Receipt Date: 20180413
  Transmission Date: 20180711
  Serious: Yes (Death, Hospitalization)
  Sender: FDA-Public Use
  Company Number: GB-ABBVIE-18K-167-2249692-00

PATIENT
  Sex: Female

DRUGS (1)
  1. DUODOPA [Suspect]
     Active Substance: CARBIDOPA\LEVODOPA
     Indication: PARKINSON^S DISEASE
     Dosage: 100ML CASSETTE,FREQUENCY: 1.5,FREQUENCY TIME: 1 DAYS (DAILY)?1 CASSETTE DAILY
     Route: 050
     Dates: end: 2018

REACTIONS (3)
  - Device issue [Unknown]
  - Drug resistance [Unknown]
  - Death [Fatal]

NARRATIVE: CASE EVENT DATE: 2018
